FAERS Safety Report 9573756 (Version 2)
Quarter: 2013Q4

REPORT INFORMATION
  Report Type: Spontaneous
  Country: AT (occurrence: AT)
  Receive Date: 20131001
  Receipt Date: 20131001
  Transmission Date: 20140711
  Serious: Yes (Hospitalization)
  Sender: FDA-Public Use
  Company Number: AT-PFIZER INC-2013148582

PATIENT
  Age: 68 Year
  Sex: Female

DRUGS (1)
  1. ZITHROMAX [Suspect]
     Dosage: UNK

REACTIONS (7)
  - Nausea [Unknown]
  - Constipation [Unknown]
  - Abdominal pain upper [Unknown]
  - Decreased appetite [Unknown]
  - Gastrointestinal inflammation [Unknown]
  - Abdominal discomfort [Unknown]
  - Off label use [Unknown]
